FAERS Safety Report 6677288-X (Version None)
Quarter: 2010Q2

REPORT INFORMATION
  Report Type: 
  Country: None (occurrence: None)
  Receive Date: 20100412
  Receipt Date: 20100408
  Transmission Date: 20101027
  Serious: Yes (Other)
  Sender: FDA-Public Use
  Company Number: US-ROXANE LABORATORIES, INC.-2010-RO-00394RO

PATIENT
  Age: 6 Year
  Sex: Male

DRUGS (4)
  1. LAMOTRIGINE [Suspect]
     Indication: MYOCLONIC EPILEPSY
     Dosage: 50 MG
  2. LAMOTRIGINE [Suspect]
     Dosage: 300 MG
  3. LAMOTRIGINE [Suspect]
  4. VALPROATE SODIUM [Suspect]
     Indication: MYOCLONIC EPILEPSY

REACTIONS (6)
  - AGGRESSION [None]
  - CRYING [None]
  - HALLUCINATION, AUDITORY [None]
  - HALLUCINATION, VISUAL [None]
  - INSOMNIA [None]
  - PSYCHOMOTOR HYPERACTIVITY [None]
